FAERS Safety Report 8940707 (Version 1)
Quarter: 2012Q4

REPORT INFORMATION
  Report Type: 
  Country: BR (occurrence: BR)
  Receive Date: 20121203
  Receipt Date: 20121203
  Transmission Date: 20130627
  Serious: Yes (Hospitalization, Other)
  Sender: FDA-Public Use
  Company Number: BR-PFIZER INC-2012300502

PATIENT
  Age: 74 Year
  Sex: Female

DRUGS (3)
  1. LYRICA [Suspect]
     Indication: PAIN
     Dosage: 75 mg, 2x/day (1 capsule every 12 hours)
     Route: 048
     Dates: start: 20121002
  2. CYMBALTA [Concomitant]
     Indication: PAIN
     Dosage: 1 capsule of 60 mg, 1x/day
  3. EUTIROX [Concomitant]
     Indication: HYPOTHYROIDISM
     Dosage: 1 (unspecified if capsule or tablet) in the morning
     Dates: start: 2002

REACTIONS (3)
  - Wheezing [Unknown]
  - Spinal pain [Unknown]
  - Drug ineffective [Unknown]
